FAERS Safety Report 8777941 (Version 1)
Quarter: 2012Q4

REPORT INFORMATION
  Report Type: 
  Country: US (occurrence: US)
  Receive Date: 20120912
  Receipt Date: 20120912
  Transmission Date: 20130627
  Serious: No
  Sender: FDA-Public Use
  Company Number: US-VERTEX PHARMACEUTICAL INC.-AE-2012-002269

PATIENT
  Sex: Male

DRUGS (3)
  1. VX-950 [Suspect]
     Indication: HEPATITIS C
     Dosage: UNK
     Route: 048
     Dates: start: 20111231, end: 20120324
  2. PEGASYS [Concomitant]
     Indication: HEPATITIS C
     Dosage: 180 ?g, UNK
     Route: 058
     Dates: start: 20111231
  3. RIBASPHERE [Concomitant]
     Indication: HEPATITIS C
     Dosage: 1200 mg, UNK
     Route: 048
     Dates: start: 20111231

REACTIONS (3)
  - Cough [Not Recovered/Not Resolved]
  - Fatigue [Not Recovered/Not Resolved]
  - Asthenia [Not Recovered/Not Resolved]
